FAERS Safety Report 14349785 (Version 3)
Quarter: 2018Q2

REPORT INFORMATION
  Report Type: Spontaneous
  Country: IT (occurrence: IT)
  Receive Date: 20180104
  Receipt Date: 20180523
  Transmission Date: 20180711
  Serious: Yes (Hospitalization)
  Sender: FDA-Public Use
  Company Number: IT-MYLANLABS-2017M1083894

PATIENT
  Age: 71 Year
  Sex: Female

DRUGS (14)
  1. ROTIGOTINE [Concomitant]
     Active Substance: ROTIGOTINE
     Indication: PARKINSON^S DISEASE
     Dosage: 14 MG, DAILY
     Route: 062
     Dates: start: 20170505
  2. XADAGO [Interacting]
     Active Substance: SAFINAMIDE MESYLATE
     Dosage: 1 DF, QD
     Route: 048
     Dates: start: 20170505, end: 20170721
  3. DICLOFENAC [Suspect]
     Active Substance: DICLOFENAC
     Indication: PRODUCT USED FOR UNKNOWN INDICATION
     Dosage: 25 MG, QD
     Route: 048
  4. ACETYLSALICYLIC ACID [Concomitant]
     Active Substance: ASPIRIN
     Indication: CARDIOVASCULAR EVENT PROPHYLAXIS
     Dosage: 100 MG, DAILY
     Route: 048
  5. ACETYLSALICYLIC ACID [Concomitant]
     Active Substance: ASPIRIN
     Dosage: UNK
     Route: 065
  6. ROTIGOTINE [Concomitant]
     Active Substance: ROTIGOTINE
     Dosage: UNK
     Route: 065
  7. NORMOPRESS                         /00000101/ [Concomitant]
     Indication: HYPERTENSION
     Dosage: 0.25 DF, DAILY
     Route: 048
     Dates: start: 201707
  8. PANTOPRAZOLE [Concomitant]
     Active Substance: PANTOPRAZOLE
     Indication: PROPHYLAXIS AGAINST GASTROINTESTINAL ULCER
     Dosage: 20 MG, DAILY
     Route: 048
  9. STALEVO [Concomitant]
     Active Substance: CARBIDOPA\ENTACAPONE\LEVODOPA
     Indication: PARKINSON^S DISEASE
     Dosage: 4 DF, QD
     Route: 048
     Dates: start: 2008
  10. NORMOPRESS                         /01410101/ [Concomitant]
     Indication: HYPERTENSION
     Dosage: 0.25 DF, QD
     Route: 048
     Dates: start: 20170701
  11. STALEVO [Concomitant]
     Active Substance: CARBIDOPA\ENTACAPONE\LEVODOPA
     Indication: PARKINSON^S DISEASE
     Dosage: 4 DF, QID
     Route: 048
     Dates: start: 2008
  12. XADAGO [Interacting]
     Active Substance: SAFINAMIDE MESYLATE
     Indication: PARKINSON^S DISEASE
     Dosage: 1 DF, DAILY
     Route: 048
     Dates: start: 20170505, end: 20170721
  13. PANTOPRAZOLE [Concomitant]
     Active Substance: PANTOPRAZOLE
     Dosage: UNK
     Route: 065
  14. SINEMET [Concomitant]
     Active Substance: CARBIDOPA\LEVODOPA
     Indication: PARKINSON^S DISEASE
     Dosage: 1 DF, TID
     Route: 048
     Dates: start: 2005

REACTIONS (3)
  - Drug interaction [Unknown]
  - Dyskinesia [Recovered/Resolved]
  - Drug ineffective [Unknown]

NARRATIVE: CASE EVENT DATE: 20170719
